FAERS Safety Report 7638832-9 (Version None)
Quarter: 2011Q3

REPORT INFORMATION
  Report Type: 
  Country: None (occurrence: None)
  Receive Date: 20110726
  Receipt Date: 20110726
  Transmission Date: 20111222
  Serious: Yes (Hospitalization)
  Sender: FDA-Public Use
  Company Number: None

PATIENT
  Sex: Female
  Weight: 98.4 kg

DRUGS (8)
  1. DOXORUBICIN HYDROCHLORIDE [Suspect]
     Dosage: 156 MG
     Dates: end: 20110210
  2. THIOGUANINE [Suspect]
     Dosage: 1680 MG
     Dates: end: 20110323
  3. VINCRISTINE SULFATE [Suspect]
     Dosage: 8 MG
     Dates: end: 20110324
  4. CYTARABINE [Suspect]
     Dosage: 1240 MG
     Dates: end: 20110321
  5. CYCLOPHOSPHAMIDE [Suspect]
     Dosage: 2070 MG
     Dates: end: 20110310
  6. ONCASPAR [Suspect]
     Dosage: 10350 IU
     Dates: end: 20110324
  7. DEXAMETHASONE [Suspect]
     Dosage: 280 MG
     Dates: end: 20110216
  8. METHOTREXATE [Suspect]
     Dosage: 45 MG
     Dates: end: 20110318

REACTIONS (10)
  - FLANK PAIN [None]
  - BODY TEMPERATURE INCREASED [None]
  - BLOOD URINE PRESENT [None]
  - GLUCOSE URINE PRESENT [None]
  - DYSURIA [None]
  - CHILLS [None]
  - NAUSEA [None]
  - BLOOD GLUCOSE INCREASED [None]
  - BLOOD TRIGLYCERIDES INCREASED [None]
  - SUPRAPUBIC PAIN [None]
